FAERS Safety Report 11928134 (Version 1)
Quarter: 2016Q1

REPORT INFORMATION
  Report Type: Spontaneous
  Country: US (occurrence: US)
  Receive Date: 20160119
  Receipt Date: 20160119
  Transmission Date: 20160526
  Serious: No
  Sender: FDA-Public Use
  Company Number: US-BAYER-2016-009548

PATIENT
  Age: 12 Year
  Sex: Female

DRUGS (5)
  1. LEVOXYL [Concomitant]
     Active Substance: LEVOTHYROXINE SODIUM
  2. CLARITIN REDITABS [Suspect]
     Active Substance: LORATADINE
     Indication: ASTHMA
     Dosage: 1 DF, QD
     Route: 048
  3. CLARITIN REDITABS [Suspect]
     Active Substance: LORATADINE
     Indication: CONNECTIVE TISSUE DISORDER
  4. CLARITIN REDITABS [Suspect]
     Active Substance: LORATADINE
     Indication: ASTHMA
     Dosage: 1 DF, QD
     Route: 048
  5. CLARITIN REDITABS [Suspect]
     Active Substance: LORATADINE
     Indication: CONNECTIVE TISSUE DISORDER

REACTIONS (2)
  - Product use issue [Unknown]
  - Therapeutic response unexpected [Unknown]
